FAERS Safety Report 8840413 (Version 2)
Quarter: 2015Q1

REPORT INFORMATION
  Report Type: Report from Study
  Country: US (occurrence: US)
  Receive Date: 20121015
  Receipt Date: 20150126
  Transmission Date: 20150721
  Serious: Yes (Hospitalization)
  Sender: FDA-Public Use
  Company Number: US-ROCHE-1141212

PATIENT
  Age: 11 Year
  Sex: Male
  Weight: 28.4 kg

DRUGS (3)
  1. ZYRTEC [Concomitant]
     Active Substance: CETIRIZINE HYDROCHLORIDE
  2. PROTROPIN [Suspect]
     Active Substance: SOMATREM
     Indication: GROWTH HORMONE DEFICIENCY
     Route: 058
  3. PROTROPIN [Suspect]
     Active Substance: SOMATREM
     Indication: DEVELOPMENTAL DELAY

REACTIONS (3)
  - Abdominal pain [Recovered/Resolved]
  - Hypersensitivity [Unknown]
  - Nasal congestion [Unknown]

NARRATIVE: CASE EVENT DATE: 19990803
